FAERS Safety Report 17191132 (Version 1)
Quarter: 2019Q4

REPORT INFORMATION
  Report Type: Spontaneous
  Country: BE (occurrence: BE)
  Receive Date: 20191223
  Receipt Date: 20191223
  Transmission Date: 20200122
  Serious: Yes (Other)
  Sender: FDA-Public Use
  Company Number: BE-PFIZER INC-2019545370

PATIENT
  Age: 69 Year
  Sex: Female

DRUGS (1)
  1. MEDROL [Suspect]
     Active Substance: METHYLPREDNISOLONE
     Dosage: 3 DF, 1X/DAY

REACTIONS (3)
  - Hypertension [Unknown]
  - Palpitations [Unknown]
  - Nausea [Unknown]
